FAERS Safety Report 6760549-3 (Version None)
Quarter: 2010Q2

REPORT INFORMATION
  Report Type: 
  Country: None (occurrence: None)
  Receive Date: 20100607
  Receipt Date: 20100607
  Transmission Date: 20101027
  Serious: Yes (Other)
  Sender: FDA-Public Use
  Company Number: None

PATIENT
  Age: 44 Year
  Sex: Female
  Weight: 72.1219 kg

DRUGS (1)
  1. NORINYL 1+35 [Suspect]
     Indication: CONTRACEPTION
     Dosage: ONCE EVERY DAY
     Dates: start: 20100406, end: 20100525

REACTIONS (3)
  - ABDOMINAL PAIN [None]
  - FATIGUE [None]
  - PRODUCT SUBSTITUTION ISSUE [None]
